FAERS Safety Report 25238613 (Version 1)
Quarter: 2025Q2

REPORT INFORMATION
  Report Type: Spontaneous
  Country: CN (occurrence: CN)
  Receive Date: 20250425
  Receipt Date: 20250425
  Transmission Date: 20250716
  Serious: Yes (Hospitalization, Other)
  Sender: BAXTER
  Company Number: None

PATIENT
  Age: 60 Year
  Sex: Male
  Weight: 71 kg

DRUGS (5)
  1. CYCLOPHOSPHAMIDE [Suspect]
     Active Substance: CYCLOPHOSPHAMIDE
     Indication: Non-Hodgkin^s lymphoma
     Dosage: 1.4 G, QD, D1
     Route: 041
     Dates: start: 20250210, end: 20250210
  2. ETOPOSIDE [Suspect]
     Active Substance: ETOPOSIDE
     Indication: Non-Hodgkin^s lymphoma
     Dosage: 100 MG, QD, D1-3
     Route: 041
     Dates: start: 20250210, end: 20250212
  3. PEGASPARGASE [Suspect]
     Active Substance: PEGASPARGASE
     Indication: Non-Hodgkin^s lymphoma
     Dosage: 3000 IU INTERNATIONAL UNIT(S), QD, D2
     Route: 041
     Dates: start: 20250211, end: 20250211
  4. VINCRISTINE SULFATE [Suspect]
     Active Substance: VINCRISTINE SULFATE
     Indication: Non-Hodgkin^s lymphoma
     Dosage: 2 MG, QD
     Route: 041
     Dates: start: 20250210, end: 20250210
  5. PREDNISONE ACETATE [Suspect]
     Active Substance: PREDNISONE ACETATE
     Indication: Non-Hodgkin^s lymphoma
     Dosage: 100 MG, QD, D1-D5
     Route: 048
     Dates: start: 20250210, end: 20250214

REACTIONS (3)
  - Blood fibrinogen decreased [Recovering/Resolving]
  - Liver injury [Unknown]
  - Coagulation test abnormal [Recovered/Resolved]

NARRATIVE: CASE EVENT DATE: 20250304
